FAERS Safety Report 15367004 (Version 3)
Quarter: 2018Q4

REPORT INFORMATION
  Report Type: Spontaneous
  Country: AT (occurrence: AT)
  Receive Date: 20180910
  Receipt Date: 20181130
  Transmission Date: 20190204
  Serious: Yes (Other)
  Sender: FDA-Public Use
  Company Number: AT-AMGEN-AUTSP2018124095

PATIENT
  Age: 75 Year
  Sex: Male
  Weight: 69 kg

DRUGS (1)
  1. XGEVA [Suspect]
     Active Substance: DENOSUMAB
     Indication: PROSTATE CANCER METASTATIC
     Dosage: 120 MG, QMO
     Route: 065
     Dates: start: 20160915

REACTIONS (3)
  - Osteonecrosis of jaw [Unknown]
  - Periodontal destruction [Unknown]
  - Toothache [Unknown]

NARRATIVE: CASE EVENT DATE: 201802
